FAERS Safety Report 5604369-1 (Version None)
Quarter: 2008Q1

REPORT INFORMATION
  Report Type: 
  Country: None (occurrence: None)
  Receive Date: 20080128
  Receipt Date: 20080114
  Transmission Date: 20080703
  Serious: Yes (Hospitalization)
  Sender: FDA-Public Use
  Company Number: US-ELI_LILLY_AND_COMPANY-US200707003750

PATIENT
  Sex: Female
  Weight: 80.726 kg

DRUGS (11)
  1. ZYPREXA [Suspect]
     Dosage: 2.5 MG, UNK
     Dates: start: 20040604
  2. ALPRAZOLAM [Concomitant]
     Dosage: 0.25 MG, UNK
     Dates: start: 20021009, end: 20030517
  3. ALPRAZOLAM [Concomitant]
     Dosage: 0.5 MG, UNK
     Dates: start: 20030517
  4. BUPROPION HCL [Concomitant]
     Dosage: 100 MG, UNK
     Dates: start: 20040920, end: 20041006
  5. BUPROPION HCL [Concomitant]
     Dosage: 150 MG, UNK
     Dates: start: 20041006, end: 20041106
  6. BUPROPION HCL [Concomitant]
     Dosage: 300 MG, UNK
     Dates: start: 20041106
  7. PROZAC [Concomitant]
     Dosage: 20 MG, UNK
     Dates: start: 20030131
  8. PROZAC [Concomitant]
     Dosage: 40 MG, UNK
  9. LORAZEPAM [Concomitant]
     Dosage: 0.5 MG, UNK
     Dates: start: 20041119, end: 20041218
  10. LORAZEPAM [Concomitant]
     Dosage: 1 MG, UNK
     Dates: start: 20041218
  11. CLONAZEPAM [Concomitant]
     Dosage: 0.5 MG, UNK
     Dates: start: 20041203

REACTIONS (3)
  - CARDIAC DISORDER [None]
  - PANCREATITIS [None]
  - TYPE 2 DIABETES MELLITUS [None]
